FAERS Safety Report 8406498-6 (Version None)
Quarter: 2012Q2

REPORT INFORMATION
  Report Type: 
  Country: None (occurrence: None)
  Receive Date: 20120604
  Receipt Date: 20120529
  Transmission Date: 20120825
  Serious: Yes (Other)
  Sender: FDA-Public Use
  Company Number: US-BAYER-2011-030564

PATIENT
  Age: 28 Year
  Sex: Female
  Weight: 83 kg

DRUGS (6)
  1. LITHIUM CARBONATE [Concomitant]
     Dosage: 600 MG, QD
     Route: 048
  2. CLONAZEPAM [Concomitant]
     Dosage: 0.5 MG, QD
     Route: 048
  3. CYMBALTA [Concomitant]
     Dosage: UNK UNK, QD
     Route: 048
  4. YAZ [Suspect]
     Dosage: UNK
     Route: 048
     Dates: start: 20060101, end: 20080101
  5. LUPRON [Concomitant]
     Dosage: UNK UNK, Q1MON
     Dates: start: 20060705, end: 20071120
  6. PROPOXYPHENE HCL AND ACETAMINOPHEN [Concomitant]

REACTIONS (5)
  - PAIN [None]
  - INJURY [None]
  - CHOLECYSTITIS ACUTE [None]
  - EMOTIONAL DISTRESS [None]
  - GALLBLADDER DISORDER [None]
